FAERS Safety Report 14559253 (Version 1)
Quarter: 2018Q1

REPORT INFORMATION
  Report Type: Report from Study
  Country: CO (occurrence: CO)
  Receive Date: 20180221
  Receipt Date: 20180221
  Transmission Date: 20180509
  Serious: Yes (Hospitalization, Other)
  Sender: FDA-Public Use
  Company Number: CO-ACTELION-A-US2018-167985

PATIENT
  Age: 50 Year
  Sex: Female

DRUGS (7)
  1. VENTAVIS [Suspect]
     Active Substance: ILOPROST
     Indication: PULMONARY ARTERIAL HYPERTENSION
     Dosage: 5 MG,  6 /DAY
     Route: 055
     Dates: start: 20081120
  2. NIFEDIPINE. [Concomitant]
     Active Substance: NIFEDIPINE
  3. ADEMPAS [Concomitant]
     Active Substance: RIOCIGUAT
     Indication: PULMONARY HYPERTENSION
     Dosage: UNK
     Dates: start: 20160912, end: 20170701
  4. SPIRONOLACTONE. [Concomitant]
     Active Substance: SPIRONOLACTONE
  5. XARELTO [Concomitant]
     Active Substance: RIVAROXABAN
     Dosage: UNK
  6. WARFARIN [Concomitant]
     Active Substance: WARFARIN
  7. FUROSEMIDE. [Concomitant]
     Active Substance: FUROSEMIDE

REACTIONS (20)
  - Chest pain [Unknown]
  - Coagulopathy [Not Recovered/Not Resolved]
  - Hypotension [Recovering/Resolving]
  - Choking sensation [Not Recovered/Not Resolved]
  - Hepatic cirrhosis [Unknown]
  - Abdominal pain [Recovering/Resolving]
  - Hysterectomy [Recovered/Resolved]
  - Intra-abdominal fluid collection [Not Recovered/Not Resolved]
  - Lung disorder [Not Recovered/Not Resolved]
  - Abdominal pain upper [Not Recovered/Not Resolved]
  - Weight decreased [Recovering/Resolving]
  - Bronchitis [Not Recovered/Not Resolved]
  - Vomiting [Recovering/Resolving]
  - Oxygen therapy [Unknown]
  - Eating disorder [Recovering/Resolving]
  - Cardiac failure [Recovering/Resolving]
  - Cardiac ventricular thrombosis [Recovering/Resolving]
  - Gastric dilatation [Unknown]
  - Ascites [Recovering/Resolving]
  - Pallor [Not Recovered/Not Resolved]

NARRATIVE: CASE EVENT DATE: 2016
